FAERS Safety Report 4754879-4 (Version None)
Quarter: 2005Q3

REPORT INFORMATION
  Report Type: 
  Country: None (occurrence: None)
  Receive Date: 20050825
  Receipt Date: 20050818
  Transmission Date: 20060218
  Serious: Yes (Other)
  Sender: FDA-Public Use
  Company Number: 2005-08-0001

PATIENT
  Age: 74 Year
  Sex: 0
  Weight: 55 kg

DRUGS (3)
  1. QVAR 40 [Suspect]
     Indication: ASTHMA
     Dosage: 400MCG
     Dates: start: 20031001, end: 20031001
  2. PRANLUKAST [Suspect]
     Indication: ASTHMA
     Dosage: 450MG
  3. TULOBUTEROL [Suspect]
     Dosage: 2MG

REACTIONS (4)
  - DRUG INEFFECTIVE [None]
  - EOSINOPHILIC PNEUMONIA CHRONIC [None]
  - PNEUMONIA BACTERIAL [None]
  - PNEUMONIA PRIMARY ATYPICAL [None]
